FAERS Safety Report 4852165-5 (Version None)
Quarter: 2005Q4

REPORT INFORMATION
  Report Type: 
  Country: None (occurrence: None)
  Receive Date: 20051123
  Receipt Date: 20051025
  Transmission Date: 20060501
  Serious: No
  Sender: FDA-Public Use
  Company Number: 218876

PATIENT
  Sex: Female

DRUGS (2)
  1. RAPTIVA [Suspect]
  2. VITAMINS (VITAMINS NOS) [Concomitant]

REACTIONS (1)
  - MUSCLE SPASMS [None]
